FAERS Safety Report 10517585 (Version 2)
Quarter: 2014Q4

REPORT INFORMATION
  Report Type: Spontaneous
  Country: US (occurrence: US)
  Receive Date: 20141014
  Receipt Date: 20141023
  Transmission Date: 20150528
  Serious: Yes (Hospitalization, Other)
  Sender: FDA-Public Use
  Company Number: US-009507513-1410USA004114

PATIENT
  Age: 0 Day
  Sex: Female
  Weight: 2.38 kg

DRUGS (2)
  1. IRON (UNSPECIFIED) (+) MINERALS (UNSPECIFIED) (+) VITAMINS (UNSPECIFIE [Concomitant]
     Active Substance: IRON\MINERALS\VITAMINS
     Route: 064
  2. NEXPLANON [Suspect]
     Active Substance: ETONOGESTREL
     Dosage: ETONOGESTREL IMPLANT
     Route: 064
     Dates: start: 20140107, end: 20140115

REACTIONS (4)
  - Foetal exposure during pregnancy [Recovered/Resolved]
  - Sepsis [Recovered/Resolved]
  - Respiratory distress [Recovered/Resolved]
  - Premature baby [Recovered/Resolved]

NARRATIVE: CASE EVENT DATE: 20140820
